FAERS Safety Report 12457402 (Version 1)
Quarter: 2016Q2

REPORT INFORMATION
  Report Type: Other
  Country: DE (occurrence: DE)
  Receive Date: 20160610
  Receipt Date: 20160610
  Transmission Date: 20160815
  Serious: Yes (Hospitalization)
  Sender: FDA-Public Use
  Company Number: DE-MYLANLABS-2016M1023205

PATIENT

DRUGS (3)
  1. L-THYROXIN [Concomitant]
     Active Substance: LEVOTHYROXINE SODIUM
     Dosage: 112 ?G, QD (DAILY DOSE: 112 ?G MICROGRAM(S) EVERY DAY)
     Route: 048
  2. MIRTAZAPINE. [Suspect]
     Active Substance: MIRTAZAPINE
     Dosage: 15 MG, QD (DAILY DOSE: 15 MG MILLIGRAM(S) EVERY DAY)
     Route: 048
     Dates: start: 20130917, end: 20141028
  3. MIRTAZAPINE. [Suspect]
     Active Substance: MIRTAZAPINE
     Dosage: 7.5 MG, QD (DAILY DOSE: 7.5 MG MILLIGRAM(S) EVERY DAY)
     Route: 048
     Dates: start: 20141105, end: 20141128

REACTIONS (1)
  - Restless legs syndrome [Recovered/Resolved]

NARRATIVE: CASE EVENT DATE: 20130920
